FAERS Safety Report 20499530 (Version 1)
Quarter: 2022Q1

REPORT INFORMATION
  Report Type: Spontaneous
  Country: JP (occurrence: JP)
  Receive Date: 20220222
  Receipt Date: 20220222
  Transmission Date: 20220424
  Serious: Yes (Other)
  Sender: FDA-Public Use
  Company Number: JP-SA-SAC20211207000998

PATIENT
  Age: 68 Year
  Sex: Female

DRUGS (4)
  1. OXALIPLATIN [Suspect]
     Active Substance: OXALIPLATIN
     Indication: Pancreatic carcinoma
     Dosage: UNK
     Route: 041
     Dates: start: 20211111, end: 20220106
  2. LEVOLEUCOVORIN CALCIUM [Suspect]
     Active Substance: LEVOLEUCOVORIN CALCIUM
     Indication: Pancreatic carcinoma
     Dosage: UNK
     Route: 041
     Dates: start: 20211111, end: 20220106
  3. IRINOTECAN HYDROCHLORIDE [Concomitant]
     Active Substance: IRINOTECAN HYDROCHLORIDE
     Dosage: UNK
  4. FLUOROURACIL [Concomitant]
     Active Substance: FLUOROURACIL
     Dosage: UNK

REACTIONS (2)
  - White blood cell count decreased [Unknown]
  - Febrile neutropenia [Recovered/Resolved]

NARRATIVE: CASE EVENT DATE: 20211125
